FAERS Safety Report 6958202-6 (Version None)
Quarter: 2010Q3

REPORT INFORMATION
  Report Type: 
  Country: None (occurrence: None)
  Receive Date: 20100831
  Receipt Date: 20100823
  Transmission Date: 20110219
  Serious: Yes (Hospitalization)
  Sender: FDA-Public Use
  Company Number: JP-KINGPHARMUSA00001-K201001071

PATIENT
  Age: 26 Day
  Sex: Female

DRUGS (3)
  1. LEVOXYL [Suspect]
     Dosage: 6 MCG/KG, QD, BY TUBE FEEDING
  2. LEVOXYL [Suspect]
     Dosage: 25 MCG, QD
  3. ERYTHROMYCIN [Concomitant]
     Indication: BRONCHOPULMONARY DYSPLASIA
     Dosage: UNK

REACTIONS (8)
  - ADRENAL INSUFFICIENCY [None]
  - APNOEIC ATTACK [None]
  - BRADYCARDIA FOETAL [None]
  - CIRCULATORY COLLAPSE [None]
  - ELECTROLYTE IMBALANCE [None]
  - HYPONATRAEMIA [None]
  - HYPOTENSION [None]
  - OLIGURIA [None]
